FAERS Safety Report 7565647-2 (Version None)
Quarter: 2011Q2

REPORT INFORMATION
  Report Type: 
  Country: None (occurrence: None)
  Receive Date: 20110616
  Receipt Date: 20110602
  Transmission Date: 20111010
  Serious: Yes (Other)
  Sender: FDA-Public Use
  Company Number: UCM201106-000019

PATIENT
  Age: 52 Year
  Sex: Female

DRUGS (1)
  1. MELOXICAM [Suspect]
     Indication: OSTEOARTHRITIS
     Dosage: 15 MG/DAY

REACTIONS (7)
  - VOMITING [None]
  - HAEMOGLOBIN DECREASED [None]
  - ANAEMIA [None]
  - GASTROINTESTINAL ULCER HAEMORRHAGE [None]
  - GASTROINTESTINAL DISORDER [None]
  - ABDOMINAL PAIN LOWER [None]
  - CONSTIPATION [None]
